FAERS Safety Report 5169832-9 (Version None)
Quarter: 2006Q4

REPORT INFORMATION
  Report Type: 
  Country: None (occurrence: None)
  Receive Date: 20061212
  Receipt Date: 20061113
  Transmission Date: 20070319
  Serious: Yes (Other)
  Sender: FDA-Public Use
  Company Number: PHNU2006DE03743

PATIENT
  Age: 61 Year
  Sex: Female
  Weight: 58 kg

DRUGS (2)
  1. VOLTAREN [Suspect]
     Indication: CATARACT OPERATION
     Dosage: 2 DROPS
     Dates: start: 20060815, end: 20060815
  2. INDOCOLLYRE [Suspect]
     Indication: CATARACT OPERATION
     Dosage: UNKNOWN
     Route: 065
     Dates: start: 20060816, end: 20060818

REACTIONS (1)
  - DEPRESSION [None]
